FAERS Safety Report 25578979 (Version 2)
Quarter: 2025Q3

REPORT INFORMATION
  Report Type: Report from Study
  Country: GB (occurrence: GB)
  Receive Date: 20250718
  Receipt Date: 20250813
  Transmission Date: 20251021
  Serious: Yes (Other)
  Sender: BAYER HEALTHCARE PHARMACEUTICALS INC.
  Company Number: GB-BAYER-2025A085012

PATIENT
  Age: 50 Year
  Sex: Male

DRUGS (4)
  1. NUBEQA [Suspect]
     Active Substance: DAROLUTAMIDE
     Indication: Hormone-dependent prostate cancer
     Dosage: 600 MG, BID
     Dates: start: 20240620, end: 20250620
  2. NUBEQA [Suspect]
     Active Substance: DAROLUTAMIDE
     Indication: Hormone-dependent prostate cancer
     Dosage: 600 MG, BID
     Dates: end: 20250802
  3. GOSERELIN [Concomitant]
     Active Substance: GOSERELIN
  4. UNSPECIFIED INGREDIENT [Concomitant]
     Active Substance: UNSPECIFIED INGREDIENT
     Indication: Blood triglycerides increased

REACTIONS (9)
  - Prostatic specific antigen increased [Recovering/Resolving]
  - Erectile dysfunction [Not Recovered/Not Resolved]
  - Chest pain [Recovering/Resolving]
  - Circulatory collapse [None]
  - Electrocardiogram abnormal [Recovering/Resolving]
  - Memory impairment [Not Recovered/Not Resolved]
  - Blood pressure increased [None]
  - Cough [None]
  - Back pain [None]

NARRATIVE: CASE EVENT DATE: 20240101
